FAERS Safety Report 23090018 (Version 11)
Quarter: 2025Q1

REPORT INFORMATION
  Report Type: Other
  Country: CA (occurrence: CA)
  Receive Date: 20231020
  Receipt Date: 20250312
  Transmission Date: 20250408
  Serious: Yes (Death, Life-Threatening, Hospitalization, Disabling, Congenital Anomaly, Other)
  Sender: APOTEX
  Company Number: CA-APOTEX-2023AP015360

PATIENT
  Age: 80 Year
  Sex: Male
  Weight: 69 kg

DRUGS (269)
  1. THEOPHYLLINE [Suspect]
     Active Substance: THEOPHYLLINE
     Indication: Chronic obstructive pulmonary disease
     Route: 065
  2. THEOPHYLLINE [Suspect]
     Active Substance: THEOPHYLLINE
     Indication: Off label use
     Dosage: 4 DOSAGE FORM, QD
     Route: 065
  3. THEOPHYLLINE [Suspect]
     Active Substance: THEOPHYLLINE
     Indication: Intentional product misuse
     Dosage: 1 DOSAGE FORM, QID
     Route: 065
  4. CALCIUM CARBONATE [Suspect]
     Active Substance: CALCIUM CARBONATE
     Indication: Vitamin supplementation
     Route: 065
  5. CALCIUM CARBONATE [Suspect]
     Active Substance: CALCIUM CARBONATE
     Indication: Intentional product misuse
  6. LANSOPRAZOLE [Suspect]
     Active Substance: LANSOPRAZOLE
     Indication: Intentional product misuse
     Dosage: UNK, QD
     Route: 048
  7. LANSOPRAZOLE [Suspect]
     Active Substance: LANSOPRAZOLE
     Indication: Antacid therapy
     Dosage: 30 MILLIGRAM, QD
     Route: 048
  8. LANSOPRAZOLE [Suspect]
     Active Substance: LANSOPRAZOLE
     Indication: Off label use
     Dosage: UNK, QD
     Route: 065
  9. LANSOPRAZOLE [Suspect]
     Active Substance: LANSOPRAZOLE
     Indication: Gastric pH decreased
     Route: 065
  10. LANSOPRAZOLE [Suspect]
     Active Substance: LANSOPRAZOLE
     Dosage: 30 MILLIGRAM, QD
     Route: 065
  11. LANSOPRAZOLE [Suspect]
     Active Substance: LANSOPRAZOLE
     Dosage: UNK, Q.6H
     Route: 048
  12. LANSOPRAZOLE [Suspect]
     Active Substance: LANSOPRAZOLE
     Dosage: 60 MILLIGRAM, QD
     Route: 048
  13. LANSOPRAZOLE [Suspect]
     Active Substance: LANSOPRAZOLE
     Route: 048
  14. POTASSIUM CHLORIDE [Suspect]
     Active Substance: POTASSIUM CHLORIDE
     Indication: Constipation
     Dosage: 17 GRAM, QD
     Route: 048
  15. POTASSIUM CHLORIDE [Suspect]
     Active Substance: POTASSIUM CHLORIDE
     Dosage: 17 MILLIGRAM, QD
     Route: 048
  16. POTASSIUM CHLORIDE [Suspect]
     Active Substance: POTASSIUM CHLORIDE
     Dosage: 17 MILLIGRAM, QD
     Route: 065
  17. METRONIDAZOLE [Suspect]
     Active Substance: METRONIDAZOLE
     Indication: Intentional product misuse
     Dosage: 500 MILLIGRAM, TID (EVERY 8 HOURS)
     Route: 048
  18. METRONIDAZOLE [Suspect]
     Active Substance: METRONIDAZOLE
     Indication: Bacterial infection
     Dosage: 1500 MILLIGRAM, QD
     Route: 048
  19. METRONIDAZOLE [Suspect]
     Active Substance: METRONIDAZOLE
     Indication: Off label use
     Dosage: UNK, TID (1 EVERY 8 HOURS)
     Route: 065
  20. METRONIDAZOLE [Suspect]
     Active Substance: METRONIDAZOLE
     Dosage: UNK UNK, Q.3H.
     Route: 048
  21. METRONIDAZOLE [Suspect]
     Active Substance: METRONIDAZOLE
     Route: 048
  22. METRONIDAZOLE [Suspect]
     Active Substance: METRONIDAZOLE
     Dosage: 500 MICROGRAM, QD
     Route: 048
  23. METRONIDAZOLE [Suspect]
     Active Substance: METRONIDAZOLE
     Dosage: 500 MILLIGRAM, QD
     Route: 048
  24. METRONIDAZOLE [Suspect]
     Active Substance: METRONIDAZOLE
     Dosage: 1500 MICROGRAM, QD
     Route: 048
  25. METRONIDAZOLE [Suspect]
     Active Substance: METRONIDAZOLE
     Dosage: 1500 MILLIGRAM, TID (EVERY 8 HOURS)
     Route: 048
  26. METRONIDAZOLE [Suspect]
     Active Substance: METRONIDAZOLE
     Dosage: 500 MICROGRAM ONCE EVERY 8 HOURS
     Route: 048
  27. METRONIDAZOLE [Suspect]
     Active Substance: METRONIDAZOLE
     Route: 048
  28. METRONIDAZOLE [Suspect]
     Active Substance: METRONIDAZOLE
     Dosage: 4500 MILLIGRAM, QD
     Route: 048
  29. METRONIDAZOLE [Suspect]
     Active Substance: METRONIDAZOLE
     Route: 065
  30. METRONIDAZOLE [Suspect]
     Active Substance: METRONIDAZOLE
     Route: 048
  31. METRONIDAZOLE [Suspect]
     Active Substance: METRONIDAZOLE
     Route: 048
  32. METRONIDAZOLE [Suspect]
     Active Substance: METRONIDAZOLE
     Route: 048
  33. METRONIDAZOLE [Suspect]
     Active Substance: METRONIDAZOLE
     Route: 048
  34. METRONIDAZOLE [Suspect]
     Active Substance: METRONIDAZOLE
     Dosage: 500 MILLIGRAM, TID (EVERY 8 HOURS)
     Route: 065
  35. METRONIDAZOLE [Suspect]
     Active Substance: METRONIDAZOLE
     Dosage: 1500 MILLIGRAM, QD
     Route: 048
  36. ACETAMINOPHEN [Suspect]
     Active Substance: ACETAMINOPHEN
     Indication: Off label use
     Dosage: 650 MILLIGRAM, QD
     Route: 048
  37. ACETAMINOPHEN [Suspect]
     Active Substance: ACETAMINOPHEN
     Indication: Intentional product misuse
     Route: 065
  38. ACETAMINOPHEN [Suspect]
     Active Substance: ACETAMINOPHEN
     Indication: Analgesic therapy
     Dosage: 5 MILLIGRAM, QD
     Route: 048
  39. ALLOPURINOL [Suspect]
     Active Substance: ALLOPURINOL
     Indication: Off label use
     Dosage: 100 MILLIGRAM, QD
     Route: 065
  40. ALLOPURINOL [Suspect]
     Active Substance: ALLOPURINOL
     Indication: Intentional product misuse
     Route: 048
  41. ALLOPURINOL [Suspect]
     Active Substance: ALLOPURINOL
     Indication: Blood uric acid increased
     Route: 065
  42. ALLOPURINOL [Suspect]
     Active Substance: ALLOPURINOL
     Dosage: 1 DOSAGE FORM, QD
     Route: 048
  43. AMLODIPINE [Suspect]
     Active Substance: AMLODIPINE BESYLATE
     Indication: Ventricular fibrillation
     Route: 065
  44. AMLODIPINE [Suspect]
     Active Substance: AMLODIPINE BESYLATE
     Indication: Drug therapy
     Dosage: UNK, QD
     Route: 065
  45. AMLODIPINE [Suspect]
     Active Substance: AMLODIPINE BESYLATE
     Dosage: 150 MILLIGRAM, QD
     Route: 065
  46. GABAPENTIN [Suspect]
     Active Substance: GABAPENTIN
     Indication: Neuralgia
     Dosage: 100 MILLIGRAM, QD
     Route: 048
  47. GABAPENTIN [Suspect]
     Active Substance: GABAPENTIN
     Route: 048
  48. GABAPENTIN [Suspect]
     Active Substance: GABAPENTIN
     Route: 065
  49. IPRATROPIUM [Suspect]
     Active Substance: IPRATROPIUM
     Indication: Sleep disorder therapy
  50. IPRATROPIUM [Suspect]
     Active Substance: IPRATROPIUM
     Indication: Off label use
     Route: 065
  51. IPRATROPIUM [Suspect]
     Active Substance: IPRATROPIUM
     Indication: Intentional product misuse
     Dosage: UNK, Q.6H
  52. IPRATROPIUM [Suspect]
     Active Substance: IPRATROPIUM
     Indication: Dyspnoea
  53. ONDANSETRON [Suspect]
     Active Substance: ONDANSETRON
     Indication: Vomiting
     Route: 065
  54. ONDANSETRON [Suspect]
     Active Substance: ONDANSETRON
     Indication: Off label use
  55. ONDANSETRON [Suspect]
     Active Substance: ONDANSETRON
     Indication: Nausea
  56. ALBUTEROL [Suspect]
     Active Substance: ALBUTEROL
     Indication: Off label use
     Dosage: UNK, Q.6H
  57. ALBUTEROL [Suspect]
     Active Substance: ALBUTEROL
     Indication: Intentional product misuse
     Route: 065
  58. ALBUTEROL [Suspect]
     Active Substance: ALBUTEROL
     Indication: Chronic obstructive pulmonary disease
  59. ALBUTEROL [Suspect]
     Active Substance: ALBUTEROL
  60. SIMVASTATIN [Suspect]
     Active Substance: SIMVASTATIN
     Indication: Vitamin supplementation
     Dosage: 40 MILLIGRAM, QD
     Route: 048
  61. SIMVASTATIN [Suspect]
     Active Substance: SIMVASTATIN
     Indication: Blood cholesterol increased
     Route: 048
  62. SIMVASTATIN [Suspect]
     Active Substance: SIMVASTATIN
     Route: 048
  63. WARFARIN [Suspect]
     Active Substance: WARFARIN
     Indication: Thrombosis
     Dosage: 2 MILLIGRAM, QD
     Route: 048
  64. WARFARIN [Suspect]
     Active Substance: WARFARIN
     Route: 065
  65. HYDROMORPHONE [Suspect]
     Active Substance: HYDROMORPHONE
     Indication: Analgesic therapy
     Route: 065
  66. HYDROMORPHONE [Suspect]
     Active Substance: HYDROMORPHONE
     Dosage: UNK, QD
     Route: 065
  67. ALUMINUM HYDROXIDE\MAGNESIUM HYDROXIDE [Suspect]
     Active Substance: ALUMINUM HYDROXIDE\MAGNESIUM HYDROXIDE
     Indication: Constipation
     Route: 054
  68. ALUMINUM HYDROXIDE\MAGNESIUM HYDROXIDE [Suspect]
     Active Substance: ALUMINUM HYDROXIDE\MAGNESIUM HYDROXIDE
     Indication: Intentional product misuse
     Route: 065
  69. ALUMINUM HYDROXIDE\MAGNESIUM HYDROXIDE [Suspect]
     Active Substance: ALUMINUM HYDROXIDE\MAGNESIUM HYDROXIDE
     Route: 054
  70. ALUMINUM HYDROXIDE\MAGNESIUM HYDROXIDE [Suspect]
     Active Substance: ALUMINUM HYDROXIDE\MAGNESIUM HYDROXIDE
     Route: 054
  71. ASCORBIC ACID\POLYETHYLENE GLYCOL 3350\POTASSIUM CHLORIDE\SODIUM ASCOR [Suspect]
     Active Substance: ASCORBIC ACID\POLYETHYLENE GLYCOL 3350\POTASSIUM CHLORIDE\SODIUM ASCORBATE\SODIUM CHLORIDE\SODIUM SU
     Indication: Nutritional supplementation
     Dosage: 1 DOSAGE FORM, Q.6H
     Route: 065
  72. ASCORBIC ACID\POLYETHYLENE GLYCOL 3350\POTASSIUM CHLORIDE\SODIUM ASCOR [Suspect]
     Active Substance: ASCORBIC ACID\POLYETHYLENE GLYCOL 3350\POTASSIUM CHLORIDE\SODIUM ASCORBATE\SODIUM CHLORIDE\SODIUM SU
     Indication: Iron deficiency
     Dosage: 17 MILLIGRAM, QD
     Route: 048
  73. ASCORBIC ACID\POLYETHYLENE GLYCOL 3350\POTASSIUM CHLORIDE\SODIUM ASCOR [Suspect]
     Active Substance: ASCORBIC ACID\POLYETHYLENE GLYCOL 3350\POTASSIUM CHLORIDE\SODIUM ASCORBATE\SODIUM CHLORIDE\SODIUM SU
     Indication: Constipation
     Route: 048
  74. ASCORBIC ACID\POLYETHYLENE GLYCOL 3350\POTASSIUM CHLORIDE\SODIUM ASCOR [Suspect]
     Active Substance: ASCORBIC ACID\POLYETHYLENE GLYCOL 3350\POTASSIUM CHLORIDE\SODIUM ASCORBATE\SODIUM CHLORIDE\SODIUM SU
     Dosage: UNK, QD
     Route: 048
  75. ASCORBIC ACID\POLYETHYLENE GLYCOL 3350\POTASSIUM CHLORIDE\SODIUM ASCOR [Suspect]
     Active Substance: ASCORBIC ACID\POLYETHYLENE GLYCOL 3350\POTASSIUM CHLORIDE\SODIUM ASCORBATE\SODIUM CHLORIDE\SODIUM SU
     Dosage: 3 MILLIGRAM, Q.WK.
     Route: 048
  76. ASCORBIC ACID\POLYETHYLENE GLYCOL 3350\POTASSIUM CHLORIDE\SODIUM ASCOR [Suspect]
     Active Substance: ASCORBIC ACID\POLYETHYLENE GLYCOL 3350\POTASSIUM CHLORIDE\SODIUM ASCORBATE\SODIUM CHLORIDE\SODIUM SU
     Route: 048
  77. ASCORBIC ACID\POLYETHYLENE GLYCOL 3350\POTASSIUM CHLORIDE\SODIUM ASCOR [Suspect]
     Active Substance: ASCORBIC ACID\POLYETHYLENE GLYCOL 3350\POTASSIUM CHLORIDE\SODIUM ASCORBATE\SODIUM CHLORIDE\SODIUM SU
     Route: 042
  78. ASCORBIC ACID\POLYETHYLENE GLYCOL 3350\POTASSIUM CHLORIDE\SODIUM ASCOR [Suspect]
     Active Substance: ASCORBIC ACID\POLYETHYLENE GLYCOL 3350\POTASSIUM CHLORIDE\SODIUM ASCORBATE\SODIUM CHLORIDE\SODIUM SU
     Route: 048
  79. ASCORBIC ACID\POLYETHYLENE GLYCOL 3350\POTASSIUM CHLORIDE\SODIUM ASCOR [Suspect]
     Active Substance: ASCORBIC ACID\POLYETHYLENE GLYCOL 3350\POTASSIUM CHLORIDE\SODIUM ASCORBATE\SODIUM CHLORIDE\SODIUM SU
     Dosage: 2.5 MILLILITER, Q.WK.
     Route: 042
  80. ASCORBIC ACID\POLYETHYLENE GLYCOL 3350\POTASSIUM CHLORIDE\SODIUM ASCOR [Suspect]
     Active Substance: ASCORBIC ACID\POLYETHYLENE GLYCOL 3350\POTASSIUM CHLORIDE\SODIUM ASCORBATE\SODIUM CHLORIDE\SODIUM SU
     Route: 048
  81. ASCORBIC ACID\POLYETHYLENE GLYCOL 3350\POTASSIUM CHLORIDE\SODIUM ASCOR [Suspect]
     Active Substance: ASCORBIC ACID\POLYETHYLENE GLYCOL 3350\POTASSIUM CHLORIDE\SODIUM ASCORBATE\SODIUM CHLORIDE\SODIUM SU
     Dosage: 3 MILLIGRAM, Q.WK.
     Route: 065
  82. ASCORBIC ACID\POLYETHYLENE GLYCOL 3350\POTASSIUM CHLORIDE\SODIUM ASCOR [Suspect]
     Active Substance: ASCORBIC ACID\POLYETHYLENE GLYCOL 3350\POTASSIUM CHLORIDE\SODIUM ASCORBATE\SODIUM CHLORIDE\SODIUM SU
     Dosage: 17 GRAM, QD
     Route: 048
  83. ASCORBIC ACID\POLYETHYLENE GLYCOL 3350\POTASSIUM CHLORIDE\SODIUM ASCOR [Suspect]
     Active Substance: ASCORBIC ACID\POLYETHYLENE GLYCOL 3350\POTASSIUM CHLORIDE\SODIUM ASCORBATE\SODIUM CHLORIDE\SODIUM SU
     Dosage: 17 GRAM, QD
     Route: 065
  84. ASCORBIC ACID\POLYETHYLENE GLYCOL 3350\POTASSIUM CHLORIDE\SODIUM ASCOR [Suspect]
     Active Substance: ASCORBIC ACID\POLYETHYLENE GLYCOL 3350\POTASSIUM CHLORIDE\SODIUM ASCORBATE\SODIUM CHLORIDE\SODIUM SU
     Route: 065
  85. ASCORBIC ACID\POLYETHYLENE GLYCOL 3350\POTASSIUM CHLORIDE\SODIUM ASCOR [Suspect]
     Active Substance: ASCORBIC ACID\POLYETHYLENE GLYCOL 3350\POTASSIUM CHLORIDE\SODIUM ASCORBATE\SODIUM CHLORIDE\SODIUM SU
     Dosage: 17 MILLIGRAM, Q.WK.
     Route: 048
  86. ASCORBIC ACID\POLYETHYLENE GLYCOL 3350\POTASSIUM CHLORIDE\SODIUM ASCOR [Suspect]
     Active Substance: ASCORBIC ACID\POLYETHYLENE GLYCOL 3350\POTASSIUM CHLORIDE\SODIUM ASCORBATE\SODIUM CHLORIDE\SODIUM SU
     Route: 042
  87. ASCORBIC ACID\POLYETHYLENE GLYCOL 3350\POTASSIUM CHLORIDE\SODIUM ASCOR [Suspect]
     Active Substance: ASCORBIC ACID\POLYETHYLENE GLYCOL 3350\POTASSIUM CHLORIDE\SODIUM ASCORBATE\SODIUM CHLORIDE\SODIUM SU
     Dosage: 17 MILLIGRAM, QD
     Route: 065
  88. ASCORBIC ACID\POLYETHYLENE GLYCOL 3350\POTASSIUM CHLORIDE\SODIUM ASCOR [Suspect]
     Active Substance: ASCORBIC ACID\POLYETHYLENE GLYCOL 3350\POTASSIUM CHLORIDE\SODIUM ASCORBATE\SODIUM CHLORIDE\SODIUM SU
     Route: 048
  89. CALCIUM CHLORIDE\DEXTROSE\POTASSIUM CHLORIDE\SODIUM ACETATE\SODIUM CHL [Suspect]
     Active Substance: CALCIUM CHLORIDE\DEXTROSE\POTASSIUM CHLORIDE\SODIUM ACETATE\SODIUM CHLORIDE
     Indication: Product used for unknown indication
     Route: 065
  90. DEXILANT [Suspect]
     Active Substance: DEXLANSOPRAZOLE
     Indication: Product used for unknown indication
     Dosage: 60 MILLIGRAM, QD
     Route: 048
  91. DEXILANT [Suspect]
     Active Substance: DEXLANSOPRAZOLE
     Dosage: 6 DOSAGE FORM, Q.6H
     Route: 048
  92. DEXILANT [Suspect]
     Active Substance: DEXLANSOPRAZOLE
     Dosage: 60 MILLIGRAM, QD
     Route: 065
  93. DEXTROSE [Suspect]
     Active Substance: DEXTROSE MONOHYDRATE
     Indication: Off label use
     Dosage: 1 DOSAGE FORM, QD
     Route: 042
  94. DEXTROSE [Suspect]
     Active Substance: DEXTROSE MONOHYDRATE
     Indication: Nutritional supplementation
     Dosage: 12.5 GRAM, QD
     Route: 042
  95. DEXTROSE [Suspect]
     Active Substance: DEXTROSE MONOHYDRATE
     Indication: Intentional product misuse
     Dosage: 12.5 MILLIGRAM, QD
     Route: 042
  96. DEXTROSE [Suspect]
     Active Substance: DEXTROSE MONOHYDRATE
     Dosage: 12 GRAM, QD
     Route: 042
  97. DEXTROSE [Suspect]
     Active Substance: DEXTROSE MONOHYDRATE
     Route: 065
  98. DEXTROSE [Suspect]
     Active Substance: DEXTROSE MONOHYDRATE
     Route: 042
  99. DEXTROSE [Suspect]
     Active Substance: DEXTROSE MONOHYDRATE
     Dosage: 50 MILLILITER, QD
     Route: 042
  100. DEXTROSE [Suspect]
     Active Substance: DEXTROSE MONOHYDRATE
     Dosage: 250 MILLILITER, QD
     Route: 042
  101. DEXTROSE [Suspect]
     Active Substance: DEXTROSE MONOHYDRATE
     Dosage: 12.5 MILLIGRAM, QD
     Route: 065
  102. DEXTROSE [Suspect]
     Active Substance: DEXTROSE MONOHYDRATE
     Route: 065
  103. DEXTROSE [Suspect]
     Active Substance: DEXTROSE MONOHYDRATE
     Route: 065
  104. DEXTROSE [Suspect]
     Active Substance: DEXTROSE MONOHYDRATE
     Route: 054
  105. DEXTROSE [Suspect]
     Active Substance: DEXTROSE MONOHYDRATE
     Route: 065
  106. DEXTROSE\SODIUM CHLORIDE [Suspect]
     Active Substance: DEXTROSE\SODIUM CHLORIDE
     Indication: Nutritional supplementation
     Dosage: 12.5 GRAM, QD
     Route: 042
  107. DEXTROSE\SODIUM CHLORIDE [Suspect]
     Active Substance: DEXTROSE\SODIUM CHLORIDE
     Route: 042
  108. DEXTROSE\SODIUM CHLORIDE [Suspect]
     Active Substance: DEXTROSE\SODIUM CHLORIDE
     Route: 042
  109. HEPARIN SODIUM\SODIUM CHLORIDE [Suspect]
     Active Substance: HEPARIN SODIUM\SODIUM CHLORIDE
     Indication: Off label use
     Route: 065
  110. HEPARIN SODIUM\SODIUM CHLORIDE [Suspect]
     Active Substance: HEPARIN SODIUM\SODIUM CHLORIDE
     Indication: Intentional product misuse
     Route: 042
  111. HEPARIN SODIUM\SODIUM CHLORIDE [Suspect]
     Active Substance: HEPARIN SODIUM\SODIUM CHLORIDE
     Indication: Anticoagulant therapy
     Dosage: 50 MILLILITER, QD
     Route: 042
  112. LANTHANUM CARBONATE [Suspect]
     Active Substance: LANTHANUM CARBONATE
     Indication: Blood phosphorus increased
     Dosage: 500 MILLIGRAM, QD
     Route: 048
  113. LANTHANUM CARBONATE [Suspect]
     Active Substance: LANTHANUM CARBONATE
     Indication: Off label use
     Dosage: 500 MICROGRAM ONCE EVERY 8 HOURS
     Route: 048
  114. LANTHANUM CARBONATE [Suspect]
     Active Substance: LANTHANUM CARBONATE
     Indication: Hyperphosphataemia
     Dosage: 550 MILLIGRAM, QD
     Route: 048
  115. LANTHANUM CARBONATE [Suspect]
     Active Substance: LANTHANUM CARBONATE
     Dosage: 500 MICROGRAM, QD
     Route: 048
  116. LANTHANUM CARBONATE [Suspect]
     Active Substance: LANTHANUM CARBONATE
     Route: 048
  117. LANTHANUM CARBONATE [Suspect]
     Active Substance: LANTHANUM CARBONATE
     Dosage: 500 MICROGRAM, QD
     Route: 065
  118. LANTHANUM CARBONATE [Suspect]
     Active Substance: LANTHANUM CARBONATE
     Route: 048
  119. LANTHANUM CARBONATE [Suspect]
     Active Substance: LANTHANUM CARBONATE
     Route: 065
  120. LANTHANUM CARBONATE [Suspect]
     Active Substance: LANTHANUM CARBONATE
     Route: 065
  121. LANTHANUM CARBONATE [Suspect]
     Active Substance: LANTHANUM CARBONATE
     Route: 065
  122. LANTHANUM CARBONATE [Suspect]
     Active Substance: LANTHANUM CARBONATE
     Route: 065
  123. LANTHANUM CARBONATE [Suspect]
     Active Substance: LANTHANUM CARBONATE
     Route: 048
  124. LANTHANUM CARBONATE [Suspect]
     Active Substance: LANTHANUM CARBONATE
     Dosage: 550 MICROGRAM, QD
     Route: 065
  125. LANTHANUM CARBONATE [Suspect]
     Active Substance: LANTHANUM CARBONATE
     Dosage: 550 MICROGRAM, TID
     Route: 048
  126. ELECTROLYTES NOS\POLYETHYLENE GLYCOLS [Suspect]
     Active Substance: ELECTROLYTES NOS\POLYETHYLENE GLYCOLS
     Indication: Constipation
     Dosage: 17 MILLIGRAM, QD
     Route: 048
  127. ELECTROLYTES NOS\POLYETHYLENE GLYCOLS [Suspect]
     Active Substance: ELECTROLYTES NOS\POLYETHYLENE GLYCOLS
     Route: 042
  128. ELECTROLYTES NOS\POLYETHYLENE GLYCOLS [Suspect]
     Active Substance: ELECTROLYTES NOS\POLYETHYLENE GLYCOLS
     Dosage: 17 GRAM, QD
     Route: 048
  129. ELECTROLYTES NOS\POLYETHYLENE GLYCOLS [Suspect]
     Active Substance: ELECTROLYTES NOS\POLYETHYLENE GLYCOLS
     Dosage: UNK, QD
     Route: 048
  130. ELECTROLYTES NOS\POLYETHYLENE GLYCOLS [Suspect]
     Active Substance: ELECTROLYTES NOS\POLYETHYLENE GLYCOLS
     Route: 065
  131. ELECTROLYTES NOS\POLYETHYLENE GLYCOLS [Suspect]
     Active Substance: ELECTROLYTES NOS\POLYETHYLENE GLYCOLS
     Dosage: 3 MILLIGRAM, Q.WK.
     Route: 048
  132. ONDANSETRON [Suspect]
     Active Substance: ONDANSETRON
     Indication: Vomiting
     Route: 042
  133. ONDANSETRON [Suspect]
     Active Substance: ONDANSETRON
     Indication: Nausea
     Dosage: UNK, Q.3H.
     Route: 042
  134. ONDANSETRON [Suspect]
     Active Substance: ONDANSETRON
     Indication: Off label use
     Dosage: UNK UNK, TID (EVERY 8 HOURS)
     Route: 065
  135. ONDANSETRON [Suspect]
     Active Substance: ONDANSETRON
     Dosage: UNK, EVERY 8 HOURS
     Route: 042
  136. ONDANSETRON [Suspect]
     Active Substance: ONDANSETRON
     Dosage: 1 DOSAGE FORM EVERY 8 HOURS
     Route: 042
  137. ONDANSETRON [Suspect]
     Active Substance: ONDANSETRON
     Route: 065
  138. ONDANSETRON [Suspect]
     Active Substance: ONDANSETRON
     Route: 042
  139. ONDANSETRON [Suspect]
     Active Substance: ONDANSETRON
     Dosage: 1 DOSAGE FORM, QD
     Route: 048
  140. ONDANSETRON [Suspect]
     Active Substance: ONDANSETRON
     Dosage: 1 DOSAGE FORM, QD
     Route: 065
  141. ONDANSETRON [Suspect]
     Active Substance: ONDANSETRON
     Dosage: 1 DOSAGE FORM, Q.6H
     Route: 042
  142. ONDANSETRON [Suspect]
     Active Substance: ONDANSETRON
     Dosage: 1 DOSAGE FORM, QD
     Route: 042
  143. ONDANSETRON [Suspect]
     Active Substance: ONDANSETRON
     Dosage: 4 MILLIGRAM, QD
     Route: 042
  144. ONDANSETRON [Suspect]
     Active Substance: ONDANSETRON
     Route: 042
  145. ONDANSETRON [Suspect]
     Active Substance: ONDANSETRON
     Dosage: 4 MILLIGRAM EVERY 8 HOURS
     Route: 065
  146. ONDANSETRON [Suspect]
     Active Substance: ONDANSETRON
     Route: 065
  147. ONDANSETRON [Suspect]
     Active Substance: ONDANSETRON
     Dosage: 4 MILLIGRAM, QD
     Route: 065
  148. ONDANSETRON [Suspect]
     Active Substance: ONDANSETRON
     Dosage: 4 MILLIGRAM EVERY 8 HOURS
     Route: 042
  149. ONDANSETRON [Suspect]
     Active Substance: ONDANSETRON
     Dosage: 8 MILLIGRAM EVERY 8 HOURS
     Route: 042
  150. ONDANSETRON [Suspect]
     Active Substance: ONDANSETRON
     Route: 065
  151. ONDANSETRON [Suspect]
     Active Substance: ONDANSETRON
     Dosage: 8 MILLIGRAM, EVERY 8 HOURS
     Route: 065
  152. ONDANSETRON [Suspect]
     Active Substance: ONDANSETRON
     Dosage: 12 MILLIGRAM, QD
     Route: 042
  153. ONDANSETRON [Suspect]
     Active Substance: ONDANSETRON
     Route: 042
  154. ONDANSETRON [Suspect]
     Active Substance: ONDANSETRON
     Dosage: 12 MILLIGRAM EVERY 8 HOURS
     Route: 065
  155. ONDANSETRON [Suspect]
     Active Substance: ONDANSETRON
     Dosage: 12 DOSAGE FORM, QD
     Route: 065
  156. ONDANSETRON [Suspect]
     Active Substance: ONDANSETRON
     Route: 042
  157. ONDANSETRON [Suspect]
     Active Substance: ONDANSETRON
     Dosage: 12 MILLIGRAM, TID (1 EVERY 8 HOURS)
     Route: 042
  158. ONDANSETRON [Suspect]
     Active Substance: ONDANSETRON
     Route: 065
  159. ONDANSETRON [Suspect]
     Active Substance: ONDANSETRON
     Route: 042
  160. ONDANSETRON [Suspect]
     Active Substance: ONDANSETRON
     Dosage: 14.14 MILLIGRAM, EVERY 8 HOURS
     Route: 042
  161. ONDANSETRON [Suspect]
     Active Substance: ONDANSETRON
     Route: 065
  162. ONDANSETRON [Suspect]
     Active Substance: ONDANSETRON
     Route: 065
  163. ONDANSETRON [Suspect]
     Active Substance: ONDANSETRON
     Dosage: 24 MILLIGRAM EVERY 8 HOURS
     Route: 042
  164. ONDANSETRON [Suspect]
     Active Substance: ONDANSETRON
     Dosage: 36 MILLIGRAM, QD
     Route: 042
  165. ONDANSETRON [Suspect]
     Active Substance: ONDANSETRON
     Dosage: 36 MILLIGRAM, EVERY 8 HOURS
     Route: 042
  166. ONDANSETRON [Suspect]
     Active Substance: ONDANSETRON
     Dosage: 36 MILLIGRAM, EVERY 8 HOURS
     Route: 065
  167. ONDANSETRON [Suspect]
     Active Substance: ONDANSETRON
     Dosage: 40 MILLIGRAM EVERY 8 HOURS
     Route: 065
  168. ONDANSETRON [Suspect]
     Active Substance: ONDANSETRON
     Dosage: 40 MILLIGRAM ONCE EVERY 8 HOURS
     Route: 042
  169. ONDANSETRON [Suspect]
     Active Substance: ONDANSETRON
     Dosage: 40 MILLIGRAM, QD
     Route: 042
  170. ONDANSETRON [Suspect]
     Active Substance: ONDANSETRON
     Route: 042
  171. ONDANSETRON [Suspect]
     Active Substance: ONDANSETRON
     Route: 042
  172. ONDANSETRON [Suspect]
     Active Substance: ONDANSETRON
     Route: 042
  173. ONDANSETRON [Suspect]
     Active Substance: ONDANSETRON
     Route: 065
  174. ONDANSETRON [Suspect]
     Active Substance: ONDANSETRON
     Route: 042
  175. ONDANSETRON [Suspect]
     Active Substance: ONDANSETRON
     Dosage: 41.14 MILLIGRAM EVERY 8 HOURS
     Route: 042
  176. ONDANSETRON [Suspect]
     Active Substance: ONDANSETRON
     Dosage: 41.4 MILLIGRAM, EVERY 8 HOURS
     Route: 042
  177. ONDANSETRON [Suspect]
     Active Substance: ONDANSETRON
     Route: 017
  178. ONDANSETRON [Suspect]
     Active Substance: ONDANSETRON
     Route: 065
  179. ONDANSETRON [Suspect]
     Active Substance: ONDANSETRON
     Route: 042
  180. ONDANSETRON [Suspect]
     Active Substance: ONDANSETRON
     Dosage: 40 MILLIGRAM, QD
     Route: 065
  181. ONDANSETRON [Suspect]
     Active Substance: ONDANSETRON
     Dosage: 24 MILLIGRAM, QD
     Route: 065
  182. PHYTONADIONE [Suspect]
     Active Substance: PHYTONADIONE
     Indication: Vitamin supplementation
     Dosage: 5 MILLIGRAM, QD
     Route: 042
  183. PHYTONADIONE [Suspect]
     Active Substance: PHYTONADIONE
     Indication: Off label use
     Route: 065
  184. PHYTONADIONE [Suspect]
     Active Substance: PHYTONADIONE
     Route: 042
  185. SODIUM BICARBONATE [Suspect]
     Active Substance: SODIUM BICARBONATE
     Indication: Nutritional supplementation
     Route: 065
  186. SODIUM BICARBONATE [Suspect]
     Active Substance: SODIUM BICARBONATE
     Route: 065
  187. SODIUM CHLORIDE [Suspect]
     Active Substance: SODIUM CHLORIDE
     Indication: Nutritional supplementation
     Route: 042
  188. SODIUM CITRATE [Suspect]
     Active Substance: SODIUM CITRATE
     Indication: Thrombosis
     Route: 065
  189. SODIUM CITRATE [Suspect]
     Active Substance: SODIUM CITRATE
     Indication: Anticoagulant therapy
     Dosage: 2.5 MILLIGRAM, QD
     Route: 065
  190. SODIUM CITRATE [Suspect]
     Active Substance: SODIUM CITRATE
     Dosage: 2.5 MILLILITER, QD
     Route: 065
  191. SODIUM CITRATE [Suspect]
     Active Substance: SODIUM CITRATE
     Dosage: 2 GRAM, QD
     Route: 065
  192. SODIUM CITRATE [Suspect]
     Active Substance: SODIUM CITRATE
     Route: 042
  193. VITAMIN C [Suspect]
     Active Substance: ASCORBIC ACID
     Indication: Vitamin supplementation
     Route: 065
  194. VITAMIN C [Suspect]
     Active Substance: ASCORBIC ACID
     Indication: Off label use
     Dosage: 17 GRAM, QD
     Route: 048
  195. VITAMIN C [Suspect]
     Active Substance: ASCORBIC ACID
     Indication: Intentional product misuse
  196. VITAMIN C [Suspect]
     Active Substance: ASCORBIC ACID
     Indication: Constipation
  197. ACETAMINOPHEN [Suspect]
     Active Substance: ACETAMINOPHEN
     Indication: Off label use
     Dosage: 5 MILLIGRAM, QD
     Route: 042
  198. ACETAMINOPHEN [Suspect]
     Active Substance: ACETAMINOPHEN
     Indication: Intentional product misuse
  199. ACETAMINOPHEN [Suspect]
     Active Substance: ACETAMINOPHEN
     Indication: Analgesic therapy
  200. ALOE VERA LEAF [Suspect]
     Active Substance: ALOE VERA LEAF
     Indication: Constipation
     Route: 065
  201. AMIODARONE HYDROCHLORIDE [Suspect]
     Active Substance: AMIODARONE HYDROCHLORIDE
     Indication: Ventricular fibrillation
     Route: 042
  202. AMIODARONE HYDROCHLORIDE [Suspect]
     Active Substance: AMIODARONE HYDROCHLORIDE
     Indication: Intentional product misuse
     Dosage: 150 MILLIGRAM, QD
     Route: 042
  203. AMIODARONE HYDROCHLORIDE [Suspect]
     Active Substance: AMIODARONE HYDROCHLORIDE
     Indication: Drug therapy
     Route: 042
  204. BETAMETHASONE [Suspect]
     Active Substance: BETAMETHASONE
     Indication: Swelling
     Route: 061
  205. BETAMETHASONE [Suspect]
     Active Substance: BETAMETHASONE
     Route: 065
  206. BISMUTH SUBSALICYLATE [Suspect]
     Active Substance: BISMUTH SUBSALICYLATE
     Indication: Constipation
     Route: 065
  207. BISMUTH SUBSALICYLATE [Suspect]
     Active Substance: BISMUTH SUBSALICYLATE
     Route: 065
  208. CALCIUM GLUCONATE [Suspect]
     Active Substance: CALCIUM GLUCONATE
     Indication: Product used for unknown indication
     Route: 065
  209. CEFTRIAXONE SODIUM [Suspect]
     Active Substance: CEFTRIAXONE SODIUM
     Indication: Bacterial infection
     Route: 042
  210. CEFTRIAXONE SODIUM [Suspect]
     Active Substance: CEFTRIAXONE SODIUM
     Route: 065
  211. DISTIGMINE BROMIDE [Suspect]
     Active Substance: DISTIGMINE BROMIDE
     Indication: Dyspnoea
     Dosage: 1 INTERNATIONAL UNIT, QD
     Route: 048
  212. DISTIGMINE BROMIDE [Suspect]
     Active Substance: DISTIGMINE BROMIDE
     Route: 065
  213. DOBUTAMINE [Suspect]
     Active Substance: DOBUTAMINE HYDROCHLORIDE
     Indication: Cardiogenic shock
     Route: 042
  214. DOBUTAMINE [Suspect]
     Active Substance: DOBUTAMINE HYDROCHLORIDE
     Route: 065
  215. DULCOLAX (BISACODYL) [Suspect]
     Active Substance: BISACODYL
     Indication: Constipation
     Dosage: 10 MILLIGRAM, QD
     Route: 048
  216. DULCOLAX (BISACODYL) [Suspect]
     Active Substance: BISACODYL
     Dosage: 10 MILLIGRAM, QD
     Route: 054
  217. FLUTICASONE FUROATE [Suspect]
     Active Substance: FLUTICASONE FUROATE
     Indication: Product used for unknown indication
     Route: 065
  218. UNSPECIFIED INGREDIENT [Suspect]
     Active Substance: UNSPECIFIED INGREDIENT
     Indication: Anticoagulant therapy
     Route: 042
  219. HYDROMORPHONE HYDROCHLORIDE [Suspect]
     Active Substance: HYDROMORPHONE HYDROCHLORIDE
     Indication: Analgesic therapy
     Dosage: 1 MILLIGRAM, Q.6H
     Route: 058
  220. HYDROMORPHONE HYDROCHLORIDE [Suspect]
     Active Substance: HYDROMORPHONE HYDROCHLORIDE
     Indication: Analgesic therapy
     Route: 065
  221. HYDROMORPHONE HYDROCHLORIDE [Suspect]
     Active Substance: HYDROMORPHONE HYDROCHLORIDE
     Route: 065
  222. INSULIN ASPART [Suspect]
     Active Substance: INSULIN ASPART
     Indication: Diabetes mellitus
     Route: 058
  223. INSULIN ASPART [Suspect]
     Active Substance: INSULIN ASPART
     Route: 065
  224. LIDOCAINE HYDROCHLORIDE [Suspect]
     Active Substance: LIDOCAINE HYDROCHLORIDE
     Indication: Ventricular fibrillation
     Route: 065
  225. LIDOCAINE HYDROCHLORIDE [Suspect]
     Active Substance: LIDOCAINE HYDROCHLORIDE
     Indication: Constipation
     Route: 065
  226. POLYETHYLENE GLYCOL 3350 [Suspect]
     Active Substance: POLYETHYLENE GLYCOL 3350
     Indication: Constipation
     Dosage: UNK, QD
     Route: 048
  227. POLYETHYLENE GLYCOL 3350 [Suspect]
     Active Substance: POLYETHYLENE GLYCOL 3350
     Indication: Nutritional supplementation
     Route: 048
  228. POLYETHYLENE GLYCOL 3350 [Suspect]
     Active Substance: POLYETHYLENE GLYCOL 3350
     Indication: Iron deficiency
     Route: 065
  229. POLYETHYLENE GLYCOL 3350 [Suspect]
     Active Substance: POLYETHYLENE GLYCOL 3350
     Dosage: 3 MILLIGRAM, Q.WK.
     Route: 065
  230. POLYETHYLENE GLYCOL 3350 [Suspect]
     Active Substance: POLYETHYLENE GLYCOL 3350
     Dosage: 3 MILLIGRAM, Q.WK.
     Route: 048
  231. POLYETHYLENE GLYCOL 3350 [Suspect]
     Active Substance: POLYETHYLENE GLYCOL 3350
     Route: 048
  232. POLYETHYLENE GLYCOL 3350 [Suspect]
     Active Substance: POLYETHYLENE GLYCOL 3350
     Route: 048
  233. POLYETHYLENE GLYCOL 3350 [Suspect]
     Active Substance: POLYETHYLENE GLYCOL 3350
     Route: 050
  234. POLYETHYLENE GLYCOL 3350 [Suspect]
     Active Substance: POLYETHYLENE GLYCOL 3350
     Dosage: 17 GRAM, QD
     Route: 048
  235. POLYETHYLENE GLYCOL 3350 [Suspect]
     Active Substance: POLYETHYLENE GLYCOL 3350
     Route: 048
  236. MAGNESIUM CARBONATE [Suspect]
     Active Substance: MAGNESIUM CARBONATE
     Indication: Product used for unknown indication
     Route: 065
  237. MELATONIN [Suspect]
     Active Substance: MELATONIN
     Indication: Sleep disorder therapy
     Dosage: 3 MILLIGRAM, QD
     Route: 048
  238. MELATONIN [Suspect]
     Active Substance: MELATONIN
     Route: 065
  239. NOREPINEPHRINE [Suspect]
     Active Substance: NOREPINEPHRINE
     Indication: Stress
     Route: 048
  240. NOREPINEPHRINE [Suspect]
     Active Substance: NOREPINEPHRINE
     Route: 042
  241. NOREPINEPHRINE [Suspect]
     Active Substance: NOREPINEPHRINE
     Route: 048
  242. POLYETHYLENE GLYCOL 4000 [Suspect]
     Active Substance: POLYETHYLENE GLYCOL 4000
     Indication: Iron deficiency
     Dosage: 1 DOSAGE FORM, Q.6H
     Route: 065
  243. POLYETHYLENE GLYCOL 4000 [Suspect]
     Active Substance: POLYETHYLENE GLYCOL 4000
     Indication: Constipation
     Dosage: 3 GRAM, Q.WK.
     Route: 065
  244. POLYETHYLENE GLYCOL 4000 [Suspect]
     Active Substance: POLYETHYLENE GLYCOL 4000
     Dosage: 17 GRAM, QD
     Route: 048
  245. POLYETHYLENE GLYCOL 4000 [Suspect]
     Active Substance: POLYETHYLENE GLYCOL 4000
     Route: 048
  246. POLYETHYLENE GLYCOL 4000 [Suspect]
     Active Substance: POLYETHYLENE GLYCOL 4000
     Route: 065
  247. POLYETHYLENE GLYCOL 4000 [Suspect]
     Active Substance: POLYETHYLENE GLYCOL 4000
     Route: 048
  248. POLYETHYLENE GLYCOL 4000 [Suspect]
     Active Substance: POLYETHYLENE GLYCOL 4000
     Dosage: UNK UNK, QD
     Route: 048
  249. POLYETHYLENE GLYCOL 4000 [Suspect]
     Active Substance: POLYETHYLENE GLYCOL 4000
     Route: 042
  250. POLYETHYLENE GLYCOL 4000 [Suspect]
     Active Substance: POLYETHYLENE GLYCOL 4000
     Route: 065
  251. POLYETHYLENE GLYCOL 4000 [Suspect]
     Active Substance: POLYETHYLENE GLYCOL 4000
     Dosage: 17 MILLIGRAM, QD
     Route: 048
  252. POLYETHYLENE GLYCOL 4000 [Suspect]
     Active Substance: POLYETHYLENE GLYCOL 4000
     Route: 042
  253. PYRIDOXINE HYDROCHLORIDE [Suspect]
     Active Substance: PYRIDOXINE HYDROCHLORIDE
     Indication: Vitamin supplementation
     Route: 048
  254. PYRIDOXINE HYDROCHLORIDE [Suspect]
     Active Substance: PYRIDOXINE HYDROCHLORIDE
     Route: 065
  255. VITAMIN A PALMITATE [Suspect]
     Active Substance: VITAMIN A PALMITATE
     Indication: Constipation
     Dosage: 17 GRAM, QD
     Route: 065
  256. RIBOFLAVIN [Suspect]
     Active Substance: RIBOFLAVIN
     Indication: Product used for unknown indication
     Route: 065
  257. SODIUM ASCORBATE [Suspect]
     Active Substance: SODIUM ASCORBATE
     Indication: Product used for unknown indication
     Route: 065
  258. SODIUM FERRIC GLUCONATE COMPLEX [Suspect]
     Active Substance: SODIUM FERRIC GLUCONATE COMPLEX
     Indication: Iron deficiency
     Dosage: 125 MILLIGRAM, Q.M.T.
     Route: 042
  259. SODIUM FERRIC GLUCONATE COMPLEX [Suspect]
     Active Substance: SODIUM FERRIC GLUCONATE COMPLEX
     Route: 042
  260. SODIUM PICOSULFATE [Suspect]
     Active Substance: SODIUM PICOSULFATE
     Indication: Constipation
     Route: 054
  261. SODIUM PICOSULFATE [Suspect]
     Active Substance: SODIUM PICOSULFATE
     Route: 065
  262. XYLOMETAZOLINE HYDROCHLORIDE [Suspect]
     Active Substance: XYLOMETAZOLINE HYDROCHLORIDE
     Indication: Dyspnoea
  263. HYDROMORPHONE [Suspect]
     Active Substance: HYDROMORPHONE
     Indication: Analgesic therapy
     Dosage: 1 MILLIGRAM, Q.6H
     Route: 058
  264. IRON [Suspect]
     Active Substance: IRON
     Indication: Iron deficiency
     Dosage: 1 DOSAGE FORM, Q.6H
     Route: 042
  265. IRON [Suspect]
     Active Substance: IRON
     Dosage: 1 DOSAGE FORM, Q.6H
     Route: 065
  266. LEUCOVORIN CALCIUM [Suspect]
     Active Substance: LEUCOVORIN CALCIUM
     Indication: Product used for unknown indication
     Route: 065
  267. VITAMIN K1 [Suspect]
     Active Substance: PHYTONADIONE
     Indication: Vitamin supplementation
     Dosage: 5 MILLIGRAM, QD
     Route: 042
  268. VITAMIN K1 [Suspect]
     Active Substance: PHYTONADIONE
     Route: 042
  269. CALCIUM ASCORBATE [Suspect]
     Active Substance: CALCIUM ASCORBATE
     Indication: Vitamin supplementation
     Route: 065

REACTIONS (58)
  - Death [Fatal]
  - Ventricular fibrillation [Unknown]
  - Abdominal distension [Unknown]
  - Incorrect route of product administration [Unknown]
  - Analgesic therapy [Unknown]
  - Anaemia [Unknown]
  - Chronic obstructive pulmonary disease [Unknown]
  - Product use in unapproved indication [Unknown]
  - Activated partial thromboplastin time prolonged [Unknown]
  - Aortic stenosis [Unknown]
  - End stage renal disease [Unknown]
  - Gout [Unknown]
  - Hyperlipidaemia [Unknown]
  - Ulcer [Unknown]
  - Sleep disorder therapy [Unknown]
  - Blood calcium increased [Unknown]
  - Blood creatinine increased [Unknown]
  - Hyperphosphataemia [Unknown]
  - Hypertension [Unknown]
  - Hyponatraemia [Unknown]
  - Lower respiratory tract infection [Unknown]
  - Musculoskeletal stiffness [Unknown]
  - Oedema peripheral [Unknown]
  - Off label use [Unknown]
  - Pleural effusion [Unknown]
  - Total lung capacity decreased [Unknown]
  - Troponin increased [Unknown]
  - Abdominal pain [Unknown]
  - Antacid therapy [Unknown]
  - Anticoagulant therapy [Unknown]
  - Appendicitis [Unknown]
  - Appendicolith [Unknown]
  - Ascites [Unknown]
  - Blood cholesterol increased [Unknown]
  - Blood phosphorus increased [Unknown]
  - Blood test abnormal [Unknown]
  - Blood uric acid increased [Unknown]
  - Cardiogenic shock [Unknown]
  - Condition aggravated [Unknown]
  - Constipation [Unknown]
  - Diabetes mellitus [Unknown]
  - Dry mouth [Unknown]
  - Dyspnoea [Unknown]
  - General physical health deterioration [Unknown]
  - Hypophosphataemia [Unknown]
  - Intentional product misuse [Unknown]
  - Iron deficiency [Unknown]
  - Multiple organ dysfunction syndrome [Unknown]
  - Myasthenia gravis [Unknown]
  - Nausea [Unknown]
  - Neuralgia [Unknown]
  - Pulmonary embolism [Unknown]
  - Sleep disorder [Unknown]
  - Somnolence [Unknown]
  - Thrombosis [Unknown]
  - Vomiting [Unknown]
  - Drug hypersensitivity [Unknown]
  - Drug ineffective [Unknown]
